FAERS Safety Report 5982614-0 (Version None)
Quarter: 2008Q4

REPORT INFORMATION
  Report Type: 
  Country: None (occurrence: None)
  Receive Date: 20081208
  Receipt Date: 20081202
  Transmission Date: 20090506
  Serious: Yes (Life-Threatening, Hospitalization)
  Sender: FDA-Public Use
  Company Number: PHHY2008GB30424

PATIENT
  Sex: Male
  Weight: 115 kg

DRUGS (2)
  1. GLEEVEC [Suspect]
     Indication: GASTROINTESTINAL STROMAL TUMOUR
     Dosage: 400 MG/DAY
     Route: 048
     Dates: start: 20080805, end: 20080909
  2. GLEEVEC [Suspect]
     Dosage: 200 MG/DAY
     Route: 048
     Dates: start: 20080929, end: 20081001

REACTIONS (3)
  - AGRANULOCYTOSIS [None]
  - NEUTROPENIA [None]
  - PNEUMOCYSTIS JIROVECI PNEUMONIA [None]
